FAERS Safety Report 25234141 (Version 1)
Quarter: 2025Q2

REPORT INFORMATION
  Report Type: Spontaneous
  Country: US (occurrence: None)
  Receive Date: 20250423
  Receipt Date: 20250423
  Transmission Date: 20250716
  Serious: Yes (Hospitalization)
  Sender: FDA-CTU
  Company Number: None

PATIENT
  Sex: Female
  Weight: 51.75 kg

DRUGS (2)
  1. OPSUMIT [Suspect]
     Active Substance: MACITENTAN
     Indication: Pulmonary arterial hypertension
     Dosage: FREQUENCY : DAILY;?
     Route: 048
     Dates: start: 20240803
  2. ADEMPAS [Suspect]
     Active Substance: RIOCIGUAT

REACTIONS (6)
  - Femur fracture [None]
  - Hip arthroplasty [None]
  - Memory impairment [None]
  - Therapy interrupted [None]
  - Fatigue [None]
  - Dizziness [None]
